FAERS Safety Report 18562441 (Version 3)
Quarter: 2021Q4

REPORT INFORMATION
  Report Type: Spontaneous
  Country: AU (occurrence: AU)
  Receive Date: 20201130
  Receipt Date: 20211124
  Transmission Date: 20220303
  Serious: Yes (Hospitalization)
  Sender: FDA-Public Use
  Company Number: AU-BEH-2020125629

PATIENT
  Sex: Male

DRUGS (7)
  1. HIZENTRA [Suspect]
     Active Substance: HUMAN IMMUNOGLOBULIN G
     Indication: Secondary immunodeficiency
     Dosage: 36 GRAM, QMT IN TWO SITES
     Route: 058
  2. HIZENTRA [Suspect]
     Active Substance: HUMAN IMMUNOGLOBULIN G
     Dosage: 9 GRAM
     Route: 058
  3. THYROXINE [Concomitant]
     Active Substance: LEVOTHYROXINE
  4. MELOXICAM [Concomitant]
     Active Substance: MELOXICAM
  5. ACLIDINIUM BROMIDE\FORMOTEROL FUMARATE [Concomitant]
     Active Substance: ACLIDINIUM BROMIDE\FORMOTEROL FUMARATE
  6. OPTIFRESH [CARBOMER] [Concomitant]
  7. PANADOL [Concomitant]
     Active Substance: ACETAMINOPHEN

REACTIONS (3)
  - Infusion site abscess [Unknown]
  - Infusion site erythema [Unknown]
  - Infusion site infection [Unknown]
